FAERS Safety Report 17646298 (Version 2)
Quarter: 2021Q1

REPORT INFORMATION
  Report Type: Spontaneous
  Country: US (occurrence: US)
  Receive Date: 20200408
  Receipt Date: 20210209
  Transmission Date: 20210419
  Serious: Yes (Death, Other)
  Sender: FDA-Public Use
  Company Number: US-SA-2020SA088009

PATIENT
  Age: 67 Year
  Sex: Male

DRUGS (7)
  1. BEXAROTENE. [Concomitant]
     Active Substance: BEXAROTENE
     Route: 048
  2. DUPILUMAB [Suspect]
     Active Substance: DUPILUMAB
     Indication: CUTANEOUS T-CELL LYMPHOMA STAGE III
     Dosage: 600 MG, 1X
     Route: 058
  3. PREGABALIN. [Concomitant]
     Active Substance: PREGABALIN
     Route: 048
  4. INTERFERON GAMMA NOS [Concomitant]
     Active Substance: INTERFERON GAMMA
     Route: 030
  5. HYDROXYZINE [Concomitant]
     Active Substance: HYDROXYZINE HYDROCHLORIDE
     Route: 048
  6. DUPILUMAB [Suspect]
     Active Substance: DUPILUMAB
     Dosage: 300 MG, QOW
     Route: 058
  7. PREDNISONE. [Concomitant]
     Active Substance: PREDNISONE
     Indication: CUTANEOUS T-CELL LYMPHOMA STAGE III
     Route: 048

REACTIONS (13)
  - Fatigue [Fatal]
  - Off label use [Fatal]
  - Palmoplantar keratoderma [Fatal]
  - Dermatitis exfoliative generalised [Fatal]
  - Skin exfoliation [Fatal]
  - Staphylococcal bacteraemia [Fatal]
  - Cutaneous T-cell lymphoma stage IV [Fatal]
  - Disease progression [Fatal]
  - Endocarditis staphylococcal [Fatal]
  - Lymphadenopathy [Fatal]
  - Staphylococcal impetigo [Unknown]
  - Pruritus [Fatal]
  - Staphylococcal infection [Unknown]
